FAERS Safety Report 10402962 (Version 3)
Quarter: 2014Q3

REPORT INFORMATION
  Report Type: Report from Study
  Country: TH (occurrence: TH)
  Receive Date: 20140822
  Receipt Date: 20140902
  Transmission Date: 20150326
  Serious: Yes (Life-Threatening, Hospitalization)
  Sender: FDA-Public Use
  Company Number: PHHO2014TH010821

PATIENT
  Age: 74 Year
  Sex: Female
  Weight: 62.24 kg

DRUGS (2)
  1. ALISKIREN [Suspect]
     Active Substance: ALISKIREN
     Indication: CARDIAC FAILURE
     Dosage: UNK
     Route: 048
     Dates: start: 20110822, end: 20130911
  2. ENALAPRIL [Suspect]
     Active Substance: ENALAPRIL
     Indication: CARDIAC FAILURE
     Dosage: UNK
     Route: 048
     Dates: start: 20110822, end: 20130911

REACTIONS (2)
  - Angina unstable [Recovered/Resolved with Sequelae]
  - Vascular graft occlusion [Not Recovered/Not Resolved]

NARRATIVE: CASE EVENT DATE: 20140630
